FAERS Safety Report 9123415 (Version 19)
Quarter: 2018Q2

REPORT INFORMATION
  Report Type: Report from Study
  Country: CA (occurrence: CA)
  Receive Date: 20130114
  Receipt Date: 20180528
  Transmission Date: 20180711
  Serious: Yes (Hospitalization, Other)
  Sender: FDA-Public Use
  Company Number: CA-ROCHE-1002248

PATIENT
  Age: 52 Year
  Sex: Male
  Weight: 49 kg

DRUGS (10)
  1. ACTEMRA [Suspect]
     Active Substance: TOCILIZUMAB
     Route: 042
     Dates: start: 20130129
  2. ACTONEL [Concomitant]
     Active Substance: RISEDRONATE SODIUM
     Route: 048
  3. ACTEMRA [Suspect]
     Active Substance: TOCILIZUMAB
     Indication: RHEUMATOID ARTHRITIS
     Route: 058
     Dates: start: 20180325
  4. RISEDRONATE TEVA [Concomitant]
     Active Substance: RISEDRONATE SODIUM
     Route: 048
  5. SULFASALAZINE. [Concomitant]
     Active Substance: SULFASALAZINE
     Route: 048
  6. PREDNISONE. [Concomitant]
     Active Substance: PREDNISONE
     Route: 048
  7. ACTEMRA [Suspect]
     Active Substance: TOCILIZUMAB
     Route: 042
     Dates: start: 20120416
  8. NOVO-GESIC (CANADA) [Concomitant]
     Route: 048
  9. ACTEMRA [Suspect]
     Active Substance: TOCILIZUMAB
     Indication: RHEUMATOID ARTHRITIS
     Route: 042
     Dates: start: 20101115, end: 20180223
  10. ATIVAN [Concomitant]
     Active Substance: LORAZEPAM
     Dosage: DOSE: PRN
     Route: 048

REACTIONS (18)
  - Abdominal pain [Recovering/Resolving]
  - Paraesthesia [Not Recovered/Not Resolved]
  - Dyspepsia [Unknown]
  - Weight decreased [Not Recovered/Not Resolved]
  - Irritable bowel syndrome [Unknown]
  - Pancreatitis relapsing [Recovering/Resolving]
  - Dizziness [Recovered/Resolved]
  - Pancreatic disorder [Not Recovered/Not Resolved]
  - Liver disorder [Unknown]
  - Viral infection [Unknown]
  - Pancreatitis chronic [Unknown]
  - Inappropriate schedule of drug administration [Unknown]
  - Overdose [Unknown]
  - Seizure [Recovered/Resolved]
  - Hepatic enzyme increased [Unknown]
  - Blood pressure decreased [Recovered/Resolved]
  - Chills [Recovered/Resolved]
  - Diarrhoea [Not Recovered/Not Resolved]

NARRATIVE: CASE EVENT DATE: 20111002
